FAERS Safety Report 4732486-7 (Version None)
Quarter: 2005Q3

REPORT INFORMATION
  Report Type: 
  Country: None (occurrence: None)
  Receive Date: 20050801
  Receipt Date: 20050630
  Transmission Date: 20060218
  Serious: Yes (Other)
  Sender: FDA-Public Use
  Company Number: 2002056479

PATIENT
  Age: 23 Year
  Sex: Male
  Weight: 68.0396 kg

DRUGS (5)
  1. ZYRTEC [Suspect]
     Indication: ILL-DEFINED DISORDER
     Dosage: ORAL
     Route: 048
     Dates: start: 19920101, end: 19920101
  2. ERYTHROMYCIN [Suspect]
     Indication: ILL-DEFINED DISORDER
     Dosage: ORAL
     Route: 048
     Dates: start: 19920101, end: 19920101
  3. CETRICIN (CETYLPYRIDINIUM CHLORIDE, TYROTHRICIN) [Suspect]
     Indication: ILL-DEFINED DISORDER
     Dates: start: 19920101, end: 19920101
  4. ANTIBIOTICS (ANTIBIOTICS) [Suspect]
     Indication: ILL-DEFINED DISORDER
     Dates: start: 19920101, end: 19920101
  5. KETOCONAZOLE [Suspect]
     Indication: ILL-DEFINED DISORDER
     Dates: start: 19920101, end: 19920101

REACTIONS (8)
  - BLINDNESS [None]
  - CONDITION AGGRAVATED [None]
  - MITOCHONDRIAL DNA MUTATION [None]
  - OCULAR VASCULAR DISORDER [None]
  - OPTIC ATROPHY [None]
  - SCOTOMA [None]
  - VISUAL DISTURBANCE [None]
  - VISUAL EVOKED POTENTIALS ABNORMAL [None]
